FAERS Safety Report 19816855 (Version 1)
Quarter: 2021Q3

REPORT INFORMATION
  Report Type: Report from Study
  Country: IT (occurrence: IT)
  Receive Date: 20210910
  Receipt Date: 20210910
  Transmission Date: 20211014
  Serious: Yes (Other)
  Sender: FDA-Public Use
  Company Number: IT-TEVA-2021-IT-1950291

PATIENT
  Age: 41 Year
  Sex: Female

DRUGS (8)
  1. PREGABALIN. [Suspect]
     Active Substance: PREGABALIN
     Indication: DRUG ABUSE
     Dosage: 150MILLIGRAM
     Dates: start: 20210617, end: 20210617
  2. ALPRAZOLAM. [Suspect]
     Active Substance: ALPRAZOLAM
     Indication: DRUG ABUSE
     Dosage: 8MILLIGRAM:ABUSE / MISUSE
     Dates: start: 20210617, end: 20210617
  3. CIPRALEX [Suspect]
     Active Substance: ESCITALOPRAM OXALATE
     Indication: DRUG ABUSE
     Dosage: 120MILLIGRAM
     Dates: start: 20210617, end: 20210617
  4. XANAX [Suspect]
     Active Substance: ALPRAZOLAM
     Indication: DRUG ABUSE
     Dates: start: 20210617, end: 20210617
  5. TAVOR (LORAZEPAM) [Suspect]
     Active Substance: LORAZEPAM
     Indication: DRUG ABUSE
     Dosage: 4MILLIGRAM:ABUSE / MISUSE
     Dates: start: 20210617, end: 20210617
  6. INSULIN [Concomitant]
     Active Substance: INSULIN NOS
  7. TORVAST [Concomitant]
     Active Substance: ATORVASTATIN
     Dosage: 10MILLIGRAM
  8. DIAZEPAM. [Suspect]
     Active Substance: DIAZEPAM
     Indication: DRUG ABUSE
     Dosage: 70GTT:ABUSE / MISUSE
     Dates: start: 20210617, end: 20210617

REACTIONS (2)
  - Sopor [Recovering/Resolving]
  - Drug abuse [Recovering/Resolving]

NARRATIVE: CASE EVENT DATE: 20210617
